FAERS Safety Report 6550970-0 (Version None)
Quarter: 2010Q1

REPORT INFORMATION
  Report Type: 
  Country: None (occurrence: None)
  Receive Date: 20100122
  Receipt Date: 20100122
  Transmission Date: 20100710
  Serious: Yes (Disabling, Other)
  Sender: FDA-Public Use
  Company Number: None

PATIENT
  Age: 47 Year
  Sex: Female
  Weight: 72.5755 kg

DRUGS (1)
  1. DOXYCYCLINE HYCLATE CAPSULE 100MG WATSON [Suspect]
     Indication: TOOTHACHE
     Dosage: ONE CAPSULE FOUR TIMES A DAY PO
     Route: 048
     Dates: start: 20100118, end: 20100121

REACTIONS (6)
  - CHEST PAIN [None]
  - DYSPNOEA [None]
  - FEAR [None]
  - HEADACHE [None]
  - MALIGNANT DYSPHAGIA [None]
  - OROPHARYNGEAL PAIN [None]
